FAERS Safety Report 21382522 (Version 3)
Quarter: 2023Q2

REPORT INFORMATION
  Report Type: Other
  Country: ID (occurrence: None)
  Receive Date: 20220927
  Receipt Date: 20230523
  Transmission Date: 20230721
  Serious: Yes (Other)
  Sender: FDA-Public Use
  Company Number: ID-ROCHE-3182663

PATIENT
  Sex: Female

DRUGS (11)
  1. PERJETA [Suspect]
     Active Substance: PERTUZUMAB
     Indication: Breast cancer metastatic
     Dosage: CYCLE 1, 2 UNITS
     Route: 065
     Dates: start: 20211216
  2. PERJETA [Suspect]
     Active Substance: PERTUZUMAB
     Dosage: CYCLE 2, 1 UNITS
     Route: 065
     Dates: start: 20220106
  3. PERJETA [Suspect]
     Active Substance: PERTUZUMAB
     Dosage: CYCLE 3, 1 UNITS
     Route: 065
     Dates: start: 20220129
  4. PERJETA [Suspect]
     Active Substance: PERTUZUMAB
     Dosage: CYCLE 4, 1 UNITS
     Route: 065
     Dates: start: 20220219
  5. PERJETA [Suspect]
     Active Substance: PERTUZUMAB
     Dosage: CYCLE 5, 1 UNITS
     Route: 065
     Dates: start: 20220310
  6. PERJETA [Suspect]
     Active Substance: PERTUZUMAB
     Dosage: CYCLE 6, 1 UNITS
     Route: 065
     Dates: start: 20220331
  7. PERJETA [Suspect]
     Active Substance: PERTUZUMAB
     Dosage: CYCLE 7, 1 UNITS
     Route: 065
     Dates: start: 20220421
  8. PERJETA [Suspect]
     Active Substance: PERTUZUMAB
     Dosage: CYCLE 8, 1 UNITS
     Route: 065
     Dates: start: 20220520
  9. PERJETA [Suspect]
     Active Substance: PERTUZUMAB
     Dosage: CYCLE 9, 1 UNITS
     Route: 065
     Dates: start: 20220610
  10. PERJETA [Suspect]
     Active Substance: PERTUZUMAB
     Dosage: CYCLE 10, 1 UNITS
     Route: 065
     Dates: start: 20220701
  11. PERJETA [Suspect]
     Active Substance: PERTUZUMAB
     Dosage: CYCLE 11, 1 UNIT
     Route: 065
     Dates: start: 20220722

REACTIONS (1)
  - Cardiac failure [Unknown]
